FAERS Safety Report 8118371-1 (Version None)
Quarter: 2012Q1

REPORT INFORMATION
  Report Type: 
  Country: None (occurrence: None)
  Receive Date: 20120207
  Receipt Date: 20120201
  Transmission Date: 20120608
  Serious: Yes (Other)
  Sender: FDA-Public Use
  Company Number: BR-PFIZER INC-2012027780

PATIENT
  Age: 70 Year
  Sex: Male
  Weight: 93 kg

DRUGS (4)
  1. GLICLAZIDE [Concomitant]
     Indication: DIABETES MELLITUS
     Dosage: TWO TABLETS (UNKNOWN DOSE) DAILY
     Dates: start: 20020101
  2. ASPIRIN [Concomitant]
     Indication: PERIPHERAL VASCULAR DISORDER
     Dosage: 10 MG, 1X/DAY
     Dates: start: 20100101
  3. LIPITOR [Suspect]
     Indication: BLOOD CHOLESTEROL INCREASED
     Dosage: 20 MG, DAILY
     Route: 048
     Dates: start: 20070101
  4. METFORMIN [Concomitant]
     Indication: DIABETES MELLITUS
     Dosage: 850MG AT UNKNOWN DOSE, 2X/DAY
     Dates: start: 20020101

REACTIONS (2)
  - ABDOMINAL DISCOMFORT [None]
  - DYSPNOEA [None]
